FAERS Safety Report 25341334 (Version 1)
Quarter: 2025Q2

REPORT INFORMATION
  Report Type: Spontaneous
  Country: SG (occurrence: SG)
  Receive Date: 20250521
  Receipt Date: 20250521
  Transmission Date: 20250717
  Serious: Yes (Other)
  Sender: SANOFI AVENTIS
  Company Number: SG-SA-2025SA143478

PATIENT
  Age: 22 Year
  Sex: Female

DRUGS (4)
  1. CODEINE PHOSPHATE [Suspect]
     Active Substance: CODEINE PHOSPHATE
  2. GLIMEPIRIDE [Suspect]
     Active Substance: GLIMEPIRIDE
  3. NAPROXEN [Suspect]
     Active Substance: NAPROXEN
  4. MONTELUKAST [Suspect]
     Active Substance: MONTELUKAST

REACTIONS (1)
  - Anaphylactic reaction [Unknown]
